FAERS Safety Report 5300410-4 (Version None)
Quarter: 2007Q2

REPORT INFORMATION
  Report Type: 
  Country: None (occurrence: None)
  Receive Date: 20070413
  Receipt Date: 20070413
  Transmission Date: 20071010
  Serious: Yes (Life-Threatening)
  Sender: FDA-Public Use
  Company Number: None

PATIENT
  Sex: Male
  Weight: 64 kg

DRUGS (4)
  1. AMIODARONE HCL [Suspect]
     Indication: EXTRASYSTOLES
     Dosage: 150MG IV X 1 THEN 1 MG/MIN -} 0.5MG MIN
     Route: 042
     Dates: start: 20070102, end: 20070103
  2. FUROSEMIDE [Concomitant]
  3. HYDROCHLOROTHIAZIDE [Concomitant]
  4. MORPHINE [Concomitant]

REACTIONS (4)
  - ACUTE RESPIRATORY DISTRESS SYNDROME [None]
  - BRADYCARDIA [None]
  - CARDIOGENIC SHOCK [None]
  - MYOCARDIAL INFARCTION [None]
